FAERS Safety Report 9097201 (Version 3)
Quarter: 2013Q1

REPORT INFORMATION
  Report Type: Spontaneous
  Country: US (occurrence: US)
  Receive Date: 20130212
  Receipt Date: 20130301
  Transmission Date: 20140127
  Serious: Yes (Other)
  Sender: FDA-Public Use
  Company Number: US-PFIZER INC-2013055057

PATIENT
  Age: 81 Year
  Sex: Female
  Weight: 66 kg

DRUGS (4)
  1. CADUET [Suspect]
     Indication: HYPERTENSION
     Dosage: [AMLODIPINE 5MG]/[ATORVASTATIN 10MG], 1X/DAY
     Route: 048
  2. CADUET [Suspect]
     Indication: BLOOD CHOLESTEROL INCREASED
  3. ATENOLOL [Concomitant]
     Dosage: UNK
  4. LEVOTHYROXINE [Concomitant]
     Dosage: UNK

REACTIONS (2)
  - Foot fracture [Unknown]
  - Fall [Unknown]
